FAERS Safety Report 8490391-7 (Version None)
Quarter: 2012Q3

REPORT INFORMATION
  Report Type: 
  Country: None (occurrence: None)
  Receive Date: 20120705
  Receipt Date: 20120702
  Transmission Date: 20120928
  Serious: Yes (Other)
  Sender: FDA-Public Use
  Company Number: US-PFIZER INC-2012117901

PATIENT
  Sex: Female

DRUGS (4)
  1. PREMPRO [Suspect]
     Indication: MENOPAUSAL SYMPTOMS
  2. CELEXA [Concomitant]
     Indication: DEPRESSION
     Dosage: 20 MG, 1X/DAY
     Route: 048
     Dates: start: 20111104
  3. PREMPRO [Suspect]
     Indication: HOT FLUSH
     Dosage: 0.45/1.5 DAILY
     Route: 048
     Dates: start: 20111106
  4. PRAVASTATIN [Concomitant]
     Indication: BLOOD CHOLESTEROL INCREASED
     Dosage: 20 MG, 1X/DAY

REACTIONS (4)
  - MUSCLE SPASMS [None]
  - HOT FLUSH [None]
  - COUGH [None]
  - BRONCHITIS [None]
